FAERS Safety Report 9521275 (Version 2)
Quarter: 2014Q1

REPORT INFORMATION
  Report Type: Spontaneous
  Country: US (occurrence: None)
  Receive Date: 20130305
  Receipt Date: 20140306
  Transmission Date: 20141002
  Serious: Yes (Other)
  Sender: FDA-Public Use
  Company Number: 163-21880-11113179

PATIENT
  Age: 65 Year
  Sex: Male
  Weight: 136 kg

DRUGS (6)
  1. REVLIMID (LENALIDOMIDE) (CAPSULES) [Suspect]
     Indication: PLASMA CELL MYELOMA
     Dosage: 20 MG, 21 IN 21 D
     Route: 048
     Dates: start: 20110608
  2. SANDOSTATIN LAR [Suspect]
     Indication: DIARRHOEA
  3. VITAMIN D (ERGOCALCIFEROL) (UNKNOWN) [Concomitant]
  4. ZANTAC (RANITIDINE HYDROCHLORIDE) [Concomitant]
  5. WARFARIN SODIUM [Concomitant]
  6. FONDAPARINUX [Concomitant]

REACTIONS (3)
  - Diarrhoea [None]
  - Hyperglycaemia [None]
  - Pulmonary embolism [None]
